FAERS Safety Report 5321445-1 (Version None)
Quarter: 2007Q2

REPORT INFORMATION
  Report Type: 
  Country: None (occurrence: None)
  Receive Date: 20070510
  Receipt Date: 20070508
  Transmission Date: 20071010
  Serious: Yes (Other)
  Sender: FDA-Public Use
  Company Number: A0650444A

PATIENT
  Age: 88 Year
  Sex: Male

DRUGS (3)
  1. ADVAIR DISKUS 100/50 [Suspect]
     Indication: ASTHMA
     Dosage: 1PUFF TWICE PER DAY
     Route: 055
     Dates: start: 20030101
  2. ALLOPURINOL [Concomitant]
  3. LOPRESSOR [Concomitant]

REACTIONS (2)
  - BALANCE DISORDER [None]
  - PNEUMONIA [None]
